FAERS Safety Report 5228065-8 (Version None)
Quarter: 2007Q1

REPORT INFORMATION
  Report Type: 
  Country: None (occurrence: None)
  Receive Date: 20061201
  Receipt Date: 20061102
  Transmission Date: 20070707
  Serious: No
  Sender: FDA-Public Use
  Company Number: US200611000462

PATIENT
  Age: 52 Year
  Sex: Female

DRUGS (2)
  1. ALIMTA [Suspect]
     Indication: LUNG NEOPLASM MALIGNANT
     Dates: start: 20060101
  2. TARCEVA/USA/ (ERLOTINIB) [Concomitant]

REACTIONS (2)
  - BLOOD MAGNESIUM DECREASED [None]
  - DIZZINESS [None]
